FAERS Safety Report 17017426 (Version 1)
Quarter: 2019Q4

REPORT INFORMATION
  Report Type: Spontaneous
  Country: JP (occurrence: JP)
  Receive Date: 20191111
  Receipt Date: 20191111
  Transmission Date: 20200122
  Serious: Yes (Hospitalization)
  Sender: FDA-Public Use
  Company Number: JP-ZO SKIN HEALTH-2019ZOS00010

PATIENT
  Age: 11 Year
  Sex: Male

DRUGS (3)
  1. ARSENIC TRIOXIDE. [Concomitant]
     Active Substance: ARSENIC TRIOXIDE
     Indication: ACUTE PROMYELOCYTIC LEUKAEMIA
     Dosage: 0.15 MG/KG, 1X/DAY
     Route: 065
  2. TRETINOIN. [Suspect]
     Active Substance: TRETINOIN
     Indication: ACUTE PROMYELOCYTIC LEUKAEMIA
     Dosage: 45 MG/M2, 1X/DAY
     Route: 065
  3. TRETINOIN. [Suspect]
     Active Substance: TRETINOIN
     Dosage: 25 MG 1X/DAY
     Route: 065

REACTIONS (1)
  - Idiopathic intracranial hypertension [Recovered/Resolved]
